FAERS Safety Report 13935354 (Version 1)
Quarter: 2017Q3

REPORT INFORMATION
  Report Type: Spontaneous
  Country: US (occurrence: US)
  Receive Date: 20170901
  Receipt Date: 20170901
  Transmission Date: 20171127
  Serious: Yes (Death)
  Sender: FDA-Public Use
  Company Number: None

PATIENT
  Sex: Female
  Weight: 101.6 kg

DRUGS (1)
  1. CEFEPIME [Suspect]
     Active Substance: CEFEPIME HYDROCHLORIDE
     Indication: POSTOPERATIVE WOUND INFECTION
     Dosage: 1 G GRAM TWICE A DAY INTRAVENOUS (NOT OTHERWISE SPECIFIED)
     Route: 042

REACTIONS (13)
  - Encephalopathy [None]
  - Spinal cord compression [None]
  - Acute kidney injury [None]
  - Pseudomonas test positive [None]
  - Seroma [None]
  - Confusional state [None]
  - Asthenia [None]
  - Neuropathy peripheral [None]
  - Bladder dysfunction [None]
  - Wound drainage [None]
  - Diarrhoea [None]
  - Blood creatinine increased [None]
  - Blood urea increased [None]
